FAERS Safety Report 24804485 (Version 2)
Quarter: 2025Q3

REPORT INFORMATION
  Report Type: Report from Study
  Country: US (occurrence: US)
  Receive Date: 20250103
  Receipt Date: 20250803
  Transmission Date: 20251021
  Serious: Yes (Hospitalization, Other)
  Sender: ALEXION PHARMACEUTICALS
  Company Number: US-AstraZeneca-CH-00776755A

PATIENT
  Sex: Male
  Weight: 187.39 kg

DRUGS (1)
  1. CALQUENCE [Suspect]
     Active Substance: ACALABRUTINIB
     Dosage: 100 MILLIGRAM, BID
     Dates: start: 20220808

REACTIONS (4)
  - Product use issue [Unknown]
  - Insurance issue [Unknown]
  - Ulcer [Unknown]
  - Sinus disorder [Unknown]
